FAERS Safety Report 17891127 (Version 1)
Quarter: 2020Q2

REPORT INFORMATION
  Report Type: Spontaneous
  Country: US (occurrence: US)
  Receive Date: 20200612
  Receipt Date: 20200612
  Transmission Date: 20200714
  Serious: Yes (Other)
  Sender: FDA-Public Use
  Company Number: US-009507513-2006USA004072

PATIENT
  Age: 14 Year
  Sex: Female
  Weight: 49.43 kg

DRUGS (1)
  1. NEXPLANON [Suspect]
     Active Substance: ETONOGESTREL
     Indication: CONTRACEPTION
     Dosage: LEFT ARM-IMPLANT, REMINDER CARD STATED 5 YEARS, MANUFACTURER EXPIRATION IS 3 YEARS
     Route: 059
     Dates: start: 20191206

REACTIONS (3)
  - Unintended pregnancy [Not Recovered/Not Resolved]
  - Intercepted medication error [Unknown]
  - Pregnancy with implant contraceptive [Not Recovered/Not Resolved]

NARRATIVE: CASE EVENT DATE: 20191206
